FAERS Safety Report 5154650-8 (Version None)
Quarter: 2006Q4

REPORT INFORMATION
  Report Type: 
  Country: None (occurrence: None)
  Receive Date: 20061113
  Receipt Date: 20061030
  Transmission Date: 20070319
  Serious: Yes (Death, Other)
  Sender: FDA-Public Use
  Company Number: 2006074107

PATIENT
  Age: 65 Year
  Sex: Female

DRUGS (2)
  1. LIPITOR [Suspect]
     Indication: HYPERCHOLESTEROLAEMIA
     Dosage: 10 MG (1 IN 1 D), ORAL
     Route: 048
     Dates: start: 20060424, end: 20060530
  2. DEPAKENE [Suspect]
     Indication: ILL-DEFINED DISORDER
     Dosage: 4 (DF), ORAL
     Route: 048
     Dates: start: 20060502, end: 20060524

REACTIONS (21)
  - ASCITES [None]
  - BLISTER [None]
  - BLOOD PRESSURE DECREASED [None]
  - CARDIAC ARREST [None]
  - ERYTHEMA [None]
  - GENERAL PHYSICAL HEALTH DETERIORATION [None]
  - HEPATIC CONGESTION [None]
  - INCONTINENCE [None]
  - LYMPHOCYTE STIMULATION TEST POSITIVE [None]
  - MYDRIASIS [None]
  - PANCREATIC DISORDER [None]
  - PERICARDIAL EFFUSION [None]
  - PLEURAL EFFUSION [None]
  - PRURITUS [None]
  - PULMONARY OEDEMA [None]
  - RENAL NECROSIS [None]
  - RENAL TUBULAR DISORDER [None]
  - RENAL TUBULAR NECROSIS [None]
  - RESPIRATORY ARREST [None]
  - SHOCK [None]
  - SYNCOPE [None]
